FAERS Safety Report 13034503 (Version 3)
Quarter: 2017Q4

REPORT INFORMATION
  Report Type: Spontaneous
  Country: US (occurrence: US)
  Receive Date: 20161216
  Receipt Date: 20171026
  Transmission Date: 20180320
  Serious: Yes (Other)
  Sender: FDA-Public Use
  Company Number: US-WEST-WARD PHARMACEUTICALS CORP.-US-H14001-16-02879

PATIENT
  Age: 55 Year
  Sex: Male

DRUGS (7)
  1. CYCLOPHOSPHAMIDE. [Suspect]
     Active Substance: CYCLOPHOSPHAMIDE
     Indication: AMYLOIDOSIS
     Route: 065
  2. CYCLOPHOSPHAMIDE. [Suspect]
     Active Substance: CYCLOPHOSPHAMIDE
     Route: 065
  3. CARFILZOMIB [Suspect]
     Active Substance: CARFILZOMIB
     Indication: AMYLOIDOSIS
     Route: 065
  4. DEXAMETHASONE. [Suspect]
     Active Substance: DEXAMETHASONE
     Route: 065
  5. BORTEZOMIB [Suspect]
     Active Substance: BORTEZOMIB
     Indication: AMYLOIDOSIS
     Route: 065
  6. DEXAMETHASONE. [Suspect]
     Active Substance: DEXAMETHASONE
     Indication: AMYLOIDOSIS
     Route: 065
  7. MELPHALAN. [Concomitant]
     Active Substance: MELPHALAN
     Indication: AMYLOIDOSIS
     Route: 065

REACTIONS (1)
  - Neuropathy peripheral [Not Recovered/Not Resolved]
